FAERS Safety Report 10190645 (Version 1)
Quarter: 2014Q2

REPORT INFORMATION
  Report Type: Spontaneous
  Country: US (occurrence: US)
  Receive Date: 20140523
  Receipt Date: 20140523
  Transmission Date: 20141212
  Serious: No
  Sender: FDA-Public Use
  Company Number: US-B.I. PHARMACEUTICALS,INC./RIDGEFIELD-2014-BI-21271BP

PATIENT
  Sex: Male

DRUGS (1)
  1. JENTADUETO [Suspect]
     Indication: DIABETES MELLITUS
     Dosage: STRENGTH: 2.5 MG / 1000 MG; DAILY DOSE: 5.0 MG/ 2000MG
     Route: 048
     Dates: start: 2013, end: 201405

REACTIONS (1)
  - Paraesthesia [Unknown]
